FAERS Safety Report 5609105-0 (Version None)
Quarter: 2008Q1

REPORT INFORMATION
  Report Type: 
  Country: None (occurrence: None)
  Receive Date: 20080131
  Receipt Date: 20080123
  Transmission Date: 20080703
  Serious: Yes (Other)
  Sender: FDA-Public Use
  Company Number: GB-BRISTOL-MYERS SQUIBB COMPANY-14058887

PATIENT
  Age: 67 Year
  Sex: Male

DRUGS (5)
  1. CETUXIMAB [Suspect]
     Indication: COLORECTAL CANCER
     Dosage: STRENGTH- 2MG/ML
     Route: 042
     Dates: start: 20070423
  2. OXALIPLATIN [Suspect]
     Indication: COLORECTAL CANCER
     Dosage: RECENT INFUSION-16APR07;CYCLE 12
     Route: 042
     Dates: start: 20070416
  3. FLUOROURACIL [Suspect]
     Indication: COLORECTAL CANCER
     Dosage: ALSO (574MG)INTRAVENOUS BOLUS-23OCT2006-ONGOING;RECENT INFUSION-16APR07;CYCLE 12
     Route: 042
     Dates: start: 20070416
  4. MORPHINE SULFATE [Concomitant]
     Route: 048
  5. WARFARIN SODIUM [Concomitant]
     Route: 048
     Dates: start: 20070305

REACTIONS (1)
  - PULMONARY FIBROSIS [None]
